FAERS Safety Report 23461085 (Version 4)
Quarter: 2024Q2

REPORT INFORMATION
  Report Type: Spontaneous
  Country: US (occurrence: US)
  Receive Date: 20240131
  Receipt Date: 20240619
  Transmission Date: 20240716
  Serious: Yes (Other)
  Sender: FDA-Public Use
  Company Number: US-SA-SAC20240125000791

PATIENT
  Age: 73 Year
  Sex: Male

DRUGS (3)
  1. DUPIXENT [Suspect]
     Active Substance: DUPILUMAB
     Indication: Dermatitis atopic
     Dosage: 300 MG, QOW
     Route: 058
  2. VITAMIN C [Concomitant]
     Active Substance: ASCORBIC ACID
     Dosage: UNK
  3. TACROLIMUS [Concomitant]
     Active Substance: TACROLIMUS

REACTIONS (12)
  - Glaucoma [Unknown]
  - Vision blurred [Unknown]
  - Eye pruritus [Unknown]
  - Anaphylactic shock [Unknown]
  - Foaming at mouth [Unknown]
  - Arthritis [Unknown]
  - Dry skin [Unknown]
  - Pruritus [Unknown]
  - Skin fissures [Unknown]
  - Skin exfoliation [Unknown]
  - Injection site swelling [Unknown]
  - Injection site pain [Unknown]
